FAERS Safety Report 9500890 (Version 2)
Quarter: 2013Q3

REPORT INFORMATION
  Report Type: Spontaneous
  Country: US (occurrence: US)
  Receive Date: 20130905
  Receipt Date: 20130905
  Transmission Date: 20140515
  Serious: Yes (Other)
  Sender: FDA-Public Use
  Company Number: US-JNJFOC-20130808587

PATIENT
  Age: 40 Year
  Sex: Male

DRUGS (2)
  1. XARELTO [Suspect]
     Indication: DEEP VEIN THROMBOSIS
     Dosage: 3 WEEKS
     Route: 048
  2. XARELTO [Suspect]
     Indication: DEEP VEIN THROMBOSIS
     Dosage: 2 WEEKS
     Route: 048

REACTIONS (4)
  - Deep vein thrombosis [Unknown]
  - Contusion [Recovered/Resolved]
  - Local swelling [Recovered/Resolved]
  - Erythema [Recovered/Resolved]
